FAERS Safety Report 23774145 (Version 1)
Quarter: 2024Q2

REPORT INFORMATION
  Report Type: Spontaneous
  Country: JP (occurrence: JP)
  Receive Date: 20240423
  Receipt Date: 20240423
  Transmission Date: 20240716
  Serious: Yes (Other)
  Sender: FDA-Public Use
  Company Number: JP-BAYER-2024A059811

PATIENT
  Age: 8 Decade
  Sex: Male

DRUGS (9)
  1. ADEMPAS [Suspect]
     Active Substance: RIOCIGUAT
     Route: 048
  2. XARELTO [Suspect]
     Active Substance: RIVAROXABAN
     Route: 048
  3. AMBRISENTAN [Concomitant]
     Active Substance: AMBRISENTAN
  4. FUROSEMIDE [Concomitant]
     Active Substance: FUROSEMIDE
  5. AZOSEMIDE [Concomitant]
     Active Substance: AZOSEMIDE
  6. ATORVASTATIN [Concomitant]
     Active Substance: ATORVASTATIN
  7. FEBUXOSTAT [Concomitant]
     Active Substance: FEBUXOSTAT
  8. QUERCUS SALICINA STEM [Concomitant]
     Active Substance: QUERCUS SALICINA STEM
  9. SODIUM FERROUS CITRATE [Concomitant]
     Active Substance: SODIUM FERROUS CITRATE

REACTIONS (1)
  - Hepatic haemorrhage [None]
